FAERS Safety Report 21481479 (Version 3)
Quarter: 2022Q4

REPORT INFORMATION
  Report Type: Report from Study
  Country: CA (occurrence: CA)
  Receive Date: 20221019
  Receipt Date: 20221108
  Transmission Date: 20230113
  Serious: No
  Sender: FDA-Public Use
  Company Number: CA-ALXN-A202212645

PATIENT
  Age: 60 Year
  Sex: Male
  Weight: 99.8 kg

DRUGS (14)
  1. ULTOMIRIS [Suspect]
     Active Substance: RAVULIZUMAB-CWVZ
     Indication: Myasthenia gravis
     Dosage: 3300 MG, 8 WEEKS
     Route: 042
     Dates: start: 20221102
  2. ALENDRONATE SODIUM [Concomitant]
     Active Substance: ALENDRONATE SODIUM
     Indication: Bone density abnormal
     Dosage: 70 MG, QW
     Route: 065
  3. AMLODIPINE BESYLATE [Concomitant]
     Active Substance: AMLODIPINE BESYLATE
     Indication: Blood pressure abnormal
     Dosage: 10 MG, QD
     Route: 065
  4. ASPIRIN [Concomitant]
     Active Substance: ASPIRIN
     Indication: Anticoagulant therapy
     Dosage: 81 MG, QD
     Route: 065
  5. ATORVASTATIN CALCIUM [Concomitant]
     Active Substance: ATORVASTATIN CALCIUM
     Indication: Blood cholesterol abnormal
     Dosage: 10 MG, QD
     Route: 065
  6. AZATHIOPRINE [Concomitant]
     Active Substance: AZATHIOPRINE
     Indication: Myasthenia gravis
     Dosage: 50 MG, QD
     Route: 065
  7. GLICLAZIDE MR STADA [Concomitant]
     Indication: Type 2 diabetes mellitus
     Dosage: 60 MG, QD
     Route: 065
  8. JANUMET                            /06535301/ [Concomitant]
     Indication: Type 2 diabetes mellitus
     Dosage: 1000/50 MG, BID
     Route: 065
  9. JARDIANCE [Concomitant]
     Active Substance: EMPAGLIFLOZIN
     Indication: Type 2 diabetes mellitus
     Dosage: 25 MG, QD
     Route: 065
  10. INDAPAMIDE\PERINDOPRIL [Concomitant]
     Active Substance: INDAPAMIDE\PERINDOPRIL
     Indication: Blood pressure abnormal
     Dosage: 4/1.25 MG QD
     Route: 065
  11. POTASSIUM CHLORIDE [Concomitant]
     Active Substance: POTASSIUM CHLORIDE
     Indication: Myasthenia gravis
     Dosage: 1500 MG, TID
     Route: 065
  12. PREDNISONE [Concomitant]
     Active Substance: PREDNISONE
     Indication: Myasthenia gravis
     Dosage: 5 MG, QD
     Route: 065
  13. VENLAFAXINE HYDROCHLORIDE [Concomitant]
     Active Substance: VENLAFAXINE HYDROCHLORIDE
     Indication: Depression
     Dosage: 75 MG, QD
     Route: 065
  14. CHOLECALCIFEROL [Concomitant]
     Active Substance: CHOLECALCIFEROL
     Indication: Vitamin D deficiency
     Dosage: 25 MCG/1000 IU
     Route: 065

REACTIONS (3)
  - Blood pressure increased [Not Recovered/Not Resolved]
  - Off label use [Unknown]
  - Depression [Unknown]

NARRATIVE: CASE EVENT DATE: 20221102
